FAERS Safety Report 23100241 (Version 1)
Quarter: 2023Q4

REPORT INFORMATION
  Report Type: Spontaneous
  Country: US (occurrence: US)
  Receive Date: 20231024
  Receipt Date: 20231024
  Transmission Date: 20240110
  Serious: Yes (Other)
  Sender: FDA-Public Use
  Company Number: US-PFIZER INC-PV202300172988

PATIENT
  Age: 64 Year
  Sex: Female
  Weight: 88.09 kg

DRUGS (1)
  1. NYVEPRIA [Suspect]
     Active Substance: PEGFILGRASTIM-APGF
     Dosage: UNK

REACTIONS (6)
  - Colon cancer stage IV [Unknown]
  - Rectal haemorrhage [Unknown]
  - Lower gastrointestinal haemorrhage [Unknown]
  - Abdominal pain [Unknown]
  - Tumour pain [Unknown]
  - Anaemia [Unknown]

NARRATIVE: CASE EVENT DATE: 20230601
